FAERS Safety Report 9402267 (Version 1)
Quarter: 2013Q3

REPORT INFORMATION
  Report Type: Spontaneous
  Country: US (occurrence: US)
  Receive Date: 20130716
  Receipt Date: 20130716
  Transmission Date: 20140515
  Serious: No
  Sender: FDA-Public Use
  Company Number: US-GLAXOSMITHKLINE-A1015953A

PATIENT
  Age: 26 Year
  Sex: Male

DRUGS (3)
  1. NICORETTE MINIS MINT 2 MG [Suspect]
     Indication: EX-TOBACCO USER
  2. NICORETTE NICOTINE POLACRILEX LOZENGE, 4MG [Suspect]
     Indication: EX-TOBACCO USER
  3. NICORETTE MINIS MINT 2 MG [Suspect]
     Indication: EX-TOBACCO USER

REACTIONS (11)
  - Gingival pain [Not Recovered/Not Resolved]
  - Gingival erythema [Not Recovered/Not Resolved]
  - Nicotine dependence [Not Recovered/Not Resolved]
  - Skin disorder [Not Recovered/Not Resolved]
  - Oral mucosal discolouration [Not Recovered/Not Resolved]
  - Application site exfoliation [Not Recovered/Not Resolved]
  - Application site dryness [Not Recovered/Not Resolved]
  - Intentional drug misuse [Unknown]
  - Product quality issue [Unknown]
  - Drug administration error [Unknown]
  - Drug ineffective [Unknown]
